FAERS Safety Report 8941155 (Version 3)
Quarter: 2013Q3

REPORT INFORMATION
  Report Type: Report from Study
  Country: JP (occurrence: JP)
  Receive Date: 20121203
  Receipt Date: 20130903
  Transmission Date: 20140515
  Serious: Yes (Hospitalization)
  Sender: FDA-Public Use
  Company Number: JP-VERTEX PHARMACEUTICALS INC.-2012-025402

PATIENT
  Age: 50 Year
  Sex: Male

DRUGS (6)
  1. VX-950 (TELAPREVIR) [Suspect]
     Indication: CHRONIC HEPATITIS C
     Dosage: 1500 MG, QD
     Route: 048
     Dates: start: 20120904, end: 20120927
  2. VX-950 (TELAPREVIR) [Suspect]
     Dosage: 1000 MG, QD
     Route: 048
     Dates: start: 20121003, end: 20121108
  3. RIBAVIRIN [Concomitant]
     Dosage: 200 MG, QD
     Route: 048
     Dates: start: 20120904
  4. PEGINTERFERON ALFA-2B [Concomitant]
     Dosage: 1.5 ?G/KG, QW
     Route: 058
     Dates: start: 20120906
  5. MINOPHAGEN C [Concomitant]
     Dosage: 40 ML, QD
     Route: 042
     Dates: start: 20121002, end: 20121018
  6. URSO [Concomitant]
     Dosage: 300 MG, QD
     Route: 048
     Dates: start: 20121003

REACTIONS (1)
  - Hepatic function abnormal [Recovered/Resolved]
